FAERS Safety Report 5856402-X (Version None)
Quarter: 2008Q3

REPORT INFORMATION
  Report Type: 
  Country: None (occurrence: None)
  Receive Date: 20080825
  Receipt Date: 20080814
  Transmission Date: 20090109
  Serious: Yes (Other)
  Sender: FDA-Public Use
  Company Number: US-JNJFOC-20080803778

PATIENT
  Sex: Male
  Weight: 95.3 kg

DRUGS (15)
  1. RISPERDAL [Suspect]
     Route: 065
  2. RISPERDAL [Suspect]
     Indication: DRUG USE FOR UNKNOWN INDICATION
     Route: 065
  3. VARENICLINE [Suspect]
     Route: 065
  4. VARENICLINE [Suspect]
     Route: 065
  5. VARENICLINE [Suspect]
     Route: 065
  6. VARENICLINE [Suspect]
     Indication: EX-TOBACCO USER
     Route: 065
  7. HYDROXYZINE [Concomitant]
     Route: 065
  8. SEROQUEL [Concomitant]
     Route: 065
  9. DEPAKOTE [Concomitant]
     Route: 065
  10. GLIPIZIDE [Concomitant]
     Indication: DIABETES MELLITUS
     Route: 065
  11. METFORMIN [Concomitant]
     Indication: DIABETES MELLITUS
     Route: 065
  12. PRAVASTATIN [Concomitant]
     Indication: BLOOD CHOLESTEROL INCREASED
     Route: 065
  13. PROTONIX [Concomitant]
     Route: 065
  14. ASPIRIN [Concomitant]
     Route: 065
  15. OTHER HYPNOTICS AND SEDATIVES [Concomitant]
     Route: 065

REACTIONS (8)
  - ABNORMAL DREAMS [None]
  - BEDRIDDEN [None]
  - DEPRESSION [None]
  - FATIGUE [None]
  - INSOMNIA [None]
  - PAIN IN EXTREMITY [None]
  - SOMNOLENCE [None]
  - UNEVALUABLE EVENT [None]
